FAERS Safety Report 4463807-0 (Version None)
Quarter: 2004Q4

REPORT INFORMATION
  Report Type: 
  Country: None (occurrence: None)
  Receive Date: 20041001
  Receipt Date: 20040922
  Transmission Date: 20050328
  Serious: Yes (Hospitalization)
  Sender: FDA-Public Use
  Company Number: 200413530FR

PATIENT
  Age: 70 Year
  Sex: Male

DRUGS (11)
  1. RIFAMPIN AND ISONIAZID [Suspect]
     Indication: TUBERCULOSIS PROPHYLAXIS
     Route: 048
     Dates: start: 20040817, end: 20040831
  2. DI-ANTALVIC [Concomitant]
     Indication: ANKYLOSING SPONDYLITIS
     Route: 048
  3. CORTANCYL [Concomitant]
     Indication: ANKYLOSING SPONDYLITIS
     Dosage: DOSE: 5-0-0
  4. LASILIX [Concomitant]
     Indication: HYPERTENSIVE CARDIOMYOPATHY
  5. ODRIK [Concomitant]
     Indication: HYPERTENSIVE CARDIOMYOPATHY
     Route: 048
  6. ALLOPURINOL [Concomitant]
     Route: 048
  7. OGAST [Concomitant]
     Indication: ANKYLOSING SPONDYLITIS
     Route: 048
  8. VIOXX [Concomitant]
     Indication: ANKYLOSING SPONDYLITIS
     Route: 048
  9. KREDEX [Concomitant]
     Indication: HYPERTENSIVE CARDIOMYOPATHY
  10. PLAVIX [Concomitant]
     Indication: HYPERTENSIVE CARDIOMYOPATHY
  11. STILNOX [Concomitant]
     Route: 048

REACTIONS (3)
  - CHEST PAIN [None]
  - FACE OEDEMA [None]
  - URTICARIA GENERALISED [None]
